FAERS Safety Report 5284313-X (Version None)
Quarter: 2007Q1

REPORT INFORMATION
  Report Type: 
  Country: None (occurrence: None)
  Receive Date: 20070327
  Receipt Date: 20070319
  Transmission Date: 20070707
  Serious: Yes (Death)
  Sender: FDA-Public Use
  Company Number: 6031187

PATIENT
  Age: 80 Year
  Sex: Male

DRUGS (10)
  1. BISOPROLOL FUMARATE [Suspect]
     Indication: DRUG USE FOR UNKNOWN INDICATION
     Route: 048
  2. EBIXA (MEMANTINE HYDROCHLORIDE) [Suspect]
     Indication: DRUG USE FOR UNKNOWN INDICATION
     Route: 048
  3. NOVONORM (REPAGLINIDE) [Suspect]
     Indication: DRUG USE FOR UNKNOWN INDICATION
     Dosage: ORAL
     Route: 048
  4. MOPRAL (OMEPRAZOLE) [Concomitant]
  5. DIGOXIN [Concomitant]
  6. METFORMIN (TABLET) (METFORMIN) [Concomitant]
  7. FUROSEMIDE (FUROSEMIDE SODIUM [Concomitant]
  8. COZAAR [Concomitant]
  9. PREVISCAN (FLUINDIONE) [Concomitant]
  10. CIPROFIBRATE (CIPROFIBRATE) [Concomitant]

REACTIONS (3)
  - GENERAL PHYSICAL HEALTH DETERIORATION [None]
  - PARANEOPLASTIC SYNDROME [None]
  - RETROPERITONEAL FIBROSIS [None]
